FAERS Safety Report 8437890-1 (Version None)
Quarter: 2012Q2

REPORT INFORMATION
  Report Type: 
  Country: None (occurrence: None)
  Receive Date: 20120614
  Receipt Date: 20120517
  Transmission Date: 20120825
  Serious: No
  Sender: FDA-Public Use
  Company Number: US-AMGEN-USASP2012024847

PATIENT
  Age: 67 Year
  Sex: Male
  Weight: 72.562 kg

DRUGS (7)
  1. PROLIA [Suspect]
     Indication: OSTEOPOROSIS
     Dosage: 60 MG, Q6MO
     Route: 058
     Dates: start: 20110906, end: 20110906
  2. MUSCLE RELAXANTS [Concomitant]
  3. TRAZODONE HCL [Concomitant]
  4. LEXAPRO [Concomitant]
     Dosage: UNK
  5. ALBUTEROL [Concomitant]
  6. DEXILANT [Concomitant]
  7. PROLIA [Suspect]
     Dates: start: 20110101

REACTIONS (4)
  - NAUSEA [None]
  - TEMPOROMANDIBULAR JOINT SYNDROME [None]
  - PAIN IN JAW [None]
  - FATIGUE [None]
